FAERS Safety Report 10196605 (Version 2)
Quarter: 2014Q2

REPORT INFORMATION
  Report Type: Spontaneous
  Country: CN (occurrence: CN)
  Receive Date: 20140527
  Receipt Date: 20140606
  Transmission Date: 20141212
  Serious: Yes (Other)
  Sender: FDA-Public Use
  Company Number: CN-PFIZER INC-2014138274

PATIENT
  Age: 60 Year
  Sex: Female
  Weight: 54 kg

DRUGS (6)
  1. METHYLPREDNISOLONE SODIUM SUCCINATE [Suspect]
     Indication: IMMUNOSUPPRESSION
     Dosage: 0.5 G, 1X/DAY
     Route: 041
     Dates: start: 20130320, end: 20130329
  2. OMEPRAZOLE [Suspect]
     Dosage: 42.6 MG, 1X/DAY
     Route: 041
     Dates: start: 20130401, end: 20130411
  3. RUIBOTE [Suspect]
     Dosage: 20 MG, 1X/DAY
     Route: 048
     Dates: start: 20130320, end: 20130401
  4. DEXAMETHASONE [Suspect]
     Indication: IMMUNOSUPPRESSION
     Dosage: 40 MG, 1X/DAY
     Route: 041
     Dates: start: 20130331, end: 20130411
  5. CARBAZOCHROME SODIUM SULFONATE [Concomitant]
     Indication: HAEMORRHAGE
     Dosage: 80 MG, 2X/DAY
     Route: 041
     Dates: start: 20130320, end: 20130411
  6. TRANEXAMIC ACID [Concomitant]
     Indication: HAEMORRHAGE
     Dosage: 0.5 G, 2X/DAY
     Route: 041
     Dates: start: 20130320, end: 20130405

REACTIONS (2)
  - Lung infection [Recovered/Resolved]
  - Upper respiratory tract infection [Recovered/Resolved]
